FAERS Safety Report 19444125 (Version 25)
Quarter: 2025Q1

REPORT INFORMATION
  Report Type: Report from Study
  Country: US (occurrence: US)
  Receive Date: 20210621
  Receipt Date: 20250328
  Transmission Date: 20250409
  Serious: Yes (Hospitalization, Other)
  Sender: TAKEDA
  Company Number: US-SHIRE-US202022624

PATIENT
  Age: 61 Year
  Sex: Female
  Weight: 102 kg

DRUGS (46)
  1. HUMAN IMMUNOGLOBULIN G [Suspect]
     Active Substance: HUMAN IMMUNOGLOBULIN G
     Indication: Immunodeficiency common variable
     Dosage: UNK UNK, Q2WEEKS
  2. HUMAN IMMUNOGLOBULIN G [Suspect]
     Active Substance: HUMAN IMMUNOGLOBULIN G
     Indication: Primary immunodeficiency syndrome
     Dosage: 20 GRAM, Q2WEEKS
  3. HUMAN IMMUNOGLOBULIN G [Suspect]
     Active Substance: HUMAN IMMUNOGLOBULIN G
  4. HUMAN IMMUNOGLOBULIN G [Suspect]
     Active Substance: HUMAN IMMUNOGLOBULIN G
     Dosage: 20 GRAM, Q2WEEKS
  5. HIZENTRA [Suspect]
     Active Substance: HUMAN IMMUNOGLOBULIN G
     Indication: Primary immunodeficiency syndrome
  6. HIZENTRA [Suspect]
     Active Substance: HUMAN IMMUNOGLOBULIN G
     Indication: Immunodeficiency common variable
  7. REPATHA [Suspect]
     Active Substance: EVOLOCUMAB
     Indication: Product used for unknown indication
  8. BENADRYL [Concomitant]
     Active Substance: DIPHENHYDRAMINE HYDROCHLORIDE
     Indication: Product used for unknown indication
  9. MECLIZINE [Concomitant]
     Active Substance: MECLIZINE HYDROCHLORIDE
     Indication: Product used for unknown indication
  10. TYLENOL [Concomitant]
     Active Substance: ACETAMINOPHEN
     Indication: Product used for unknown indication
  11. ADVIL [Concomitant]
     Active Substance: IBUPROFEN
     Indication: Product used for unknown indication
  12. PREDNISONE [Concomitant]
     Active Substance: PREDNISONE
     Indication: Respiratory disorder
  13. PREDNISONE [Concomitant]
     Active Substance: PREDNISONE
     Indication: Asthma
  14. KETOCONAZOLE [Concomitant]
     Active Substance: KETOCONAZOLE
     Indication: Product used for unknown indication
  15. LORAZEPAM [Concomitant]
     Active Substance: LORAZEPAM
     Indication: Product used for unknown indication
  16. ESTRADIOL [Concomitant]
     Active Substance: ESTRADIOL
     Indication: Product used for unknown indication
  17. ACYCLOVIR [Concomitant]
     Active Substance: ACYCLOVIR
     Indication: Product used for unknown indication
  18. CELECOXIB [Concomitant]
     Active Substance: CELECOXIB
     Indication: Product used for unknown indication
  19. FLONASE ALLERGY RELIEF [Concomitant]
     Active Substance: FLUTICASONE PROPIONATE
     Indication: Product used for unknown indication
  20. VENTOLIN HFA [Concomitant]
     Active Substance: ALBUTEROL SULFATE
     Indication: Product used for unknown indication
  21. FEXOFENADINE HYDROCHLORIDE [Concomitant]
     Active Substance: FEXOFENADINE HYDROCHLORIDE
     Indication: Product used for unknown indication
  22. SYMBICORT [Concomitant]
     Active Substance: BUDESONIDE\FORMOTEROL FUMARATE DIHYDRATE
     Indication: Product used for unknown indication
  23. ONDANSETRON [Concomitant]
     Active Substance: ONDANSETRON
     Indication: Product used for unknown indication
  24. PIMECROLIMUS [Concomitant]
     Active Substance: PIMECROLIMUS
     Indication: Product used for unknown indication
  25. LORATADINE [Concomitant]
     Active Substance: LORATADINE
     Indication: Product used for unknown indication
  26. TRAMADOL HCL [Concomitant]
     Active Substance: TRAMADOL HYDROCHLORIDE
     Indication: Product used for unknown indication
  27. MAGNESIUM [Concomitant]
     Active Substance: MAGNESIUM
     Indication: Product used for unknown indication
  28. SERTRALINE HYDROCHLORIDE [Concomitant]
     Active Substance: SERTRALINE HYDROCHLORIDE
     Indication: Product used for unknown indication
  29. DESONIDE [Concomitant]
     Active Substance: DESONIDE
     Indication: Product used for unknown indication
  30. TRIAMCINOLONE ACETONIDE [Concomitant]
     Active Substance: TRIAMCINOLONE ACETONIDE
     Indication: Product used for unknown indication
  31. VITAMIN D3 [Concomitant]
     Active Substance: CHOLECALCIFEROL
     Indication: Product used for unknown indication
  32. NYSTATIN [Concomitant]
     Active Substance: NYSTATIN
     Indication: Product used for unknown indication
  33. VITAMIN D2 [Concomitant]
     Active Substance: ERGOCALCIFEROL
     Indication: Product used for unknown indication
  34. EPIPEN [Concomitant]
     Active Substance: EPINEPHRINE
     Indication: Product used for unknown indication
  35. EUCRISA [Concomitant]
     Active Substance: CRISABOROLE
     Indication: Product used for unknown indication
  36. EPINEPHRINE [Concomitant]
     Active Substance: EPINEPHRINE
  37. ACETAMINOPHEN [Concomitant]
     Active Substance: ACETAMINOPHEN
  38. LIDOCAINE [Concomitant]
     Active Substance: LIDOCAINE
  39. ZETIA [Concomitant]
     Active Substance: EZETIMIBE
  40. DIPHENHYDRAMINE HYDROCHLORIDE [Concomitant]
     Active Substance: DIPHENHYDRAMINE HYDROCHLORIDE
  41. ONDANSETRON [Concomitant]
     Active Substance: ONDANSETRON
  42. TEZSPIRE [Concomitant]
     Active Substance: TEZEPELUMAB-EKKO
  43. VITAMIN B [Concomitant]
     Active Substance: VITAMIN B
  44. TRAZODONE HCL [Concomitant]
     Active Substance: TRAZODONE HYDROCHLORIDE
  45. ZEPBOUND [Concomitant]
     Active Substance: TIRZEPATIDE
  46. BENZONATATE [Concomitant]
     Active Substance: BENZONATATE

REACTIONS (38)
  - Granulomatosis with polyangiitis [Unknown]
  - Asthma [Unknown]
  - Bronchitis [Recovered/Resolved]
  - Visual impairment [Unknown]
  - Eye pain [Unknown]
  - Arthralgia [Not Recovered/Not Resolved]
  - Fatigue [Unknown]
  - Headache [Unknown]
  - Upper respiratory tract infection [Unknown]
  - Respiratory disorder [Unknown]
  - Sinusitis [Unknown]
  - Anxiety [Unknown]
  - Vomiting [Recovered/Resolved]
  - Immune system disorder [Unknown]
  - Blood immunoglobulin G decreased [Unknown]
  - Eating disorder [Recovering/Resolving]
  - Body temperature abnormal [Recovering/Resolving]
  - Multiple allergies [Unknown]
  - Dental caries [Unknown]
  - Inappropriate schedule of product administration [Unknown]
  - Illness [Not Recovered/Not Resolved]
  - Obstructive sleep apnoea syndrome [Unknown]
  - Drug hypersensitivity [Unknown]
  - Rales [Unknown]
  - Sleep apnoea syndrome [Unknown]
  - Weight decreased [Unknown]
  - Epistaxis [Unknown]
  - Insomnia [Unknown]
  - Feeling abnormal [Unknown]
  - Muscle spasms [Unknown]
  - Lymphadenopathy [Unknown]
  - Malaise [Recovering/Resolving]
  - Cough [Not Recovered/Not Resolved]
  - Myalgia [Not Recovered/Not Resolved]
  - Pyrexia [Unknown]
  - Nausea [Unknown]
  - Product use issue [Unknown]
  - Insurance issue [Unknown]

NARRATIVE: CASE EVENT DATE: 20220304
